FAERS Safety Report 10078970 (Version 1)
Quarter: 2014Q2

REPORT INFORMATION
  Report Type: Spontaneous
  Country: US (occurrence: US)
  Receive Date: 20140415
  Receipt Date: 20140415
  Transmission Date: 20141212
  Serious: No
  Sender: FDA-Public Use
  Company Number: US-BAYER-2014-045854

PATIENT
  Age: 71 Year
  Sex: 0

DRUGS (1)
  1. CIPRO [Suspect]

REACTIONS (2)
  - Drug hypersensitivity [None]
  - Arthropathy [None]
